FAERS Safety Report 4354683-5 (Version None)
Quarter: 2004Q2

REPORT INFORMATION
  Report Type: 
  Country: None (occurrence: None)
  Receive Date: 20040507
  Receipt Date: 20040221
  Transmission Date: 20050107
  Serious: Yes (Hospitalization)
  Sender: FDA-Public Use
  Company Number: PHEH2004US02285

PATIENT
  Age: 69 Year
  Sex: Female

DRUGS (4)
  1. DIOVAN [Suspect]
     Indication: HYPERTENSION
     Dosage: 160 MG, QD
     Route: 048
  2. CELEBREX [Concomitant]
  3. LASIX [Concomitant]
  4. ACTONEL [Concomitant]

REACTIONS (3)
  - HYPERTENSION [None]
  - KNEE ARTHROPLASTY [None]
  - PHARMACEUTICAL PRODUCT COUNTERFEIT [None]
